FAERS Safety Report 6117973-1 (Version None)
Quarter: 2009Q1

REPORT INFORMATION
  Report Type: 
  Country: None (occurrence: None)
  Receive Date: 20090314
  Receipt Date: 20090213
  Transmission Date: 20090719
  Serious: No
  Sender: FDA-Public Use
  Company Number: US-ABBOTT-09P-163-0501770-00

PATIENT
  Sex: Female
  Weight: 45.4 kg

DRUGS (7)
  1. HUMIRA [Suspect]
     Indication: RHEUMATOID ARTHRITIS
     Route: 058
     Dates: start: 20090114
  2. SULFASALAZINE [Concomitant]
     Indication: RHEUMATOID ARTHRITIS
     Route: 048
     Dates: start: 20050714
  3. PLAQUENIL [Concomitant]
     Indication: RHEUMATOID ARTHRITIS
     Dates: start: 20050714
  4. MOBIC [Concomitant]
     Indication: DRUG USE FOR UNKNOWN INDICATION
  5. HYDROCODONE BITARTRATE [Concomitant]
     Indication: ARTHRALGIA
     Dosage: UNSURE OF STRENGTH OR IF COMBO WITH APAP
     Route: 048
  6. CORAL CALCIUM COMPLEX [Concomitant]
     Indication: MINERAL SUPPLEMENTATION
     Route: 048
  7. MEGA-PURE MULTIVITAMIN [Concomitant]
     Indication: VITAMIN SUPPLEMENTATION
     Route: 048

REACTIONS (4)
  - BACK PAIN [None]
  - JOINT STIFFNESS [None]
  - PRURITUS [None]
  - RASH [None]
